FAERS Safety Report 10983317 (Version 2)
Quarter: 2015Q2

REPORT INFORMATION
  Report Type: Spontaneous
  Country: US (occurrence: US)
  Receive Date: 20150403
  Receipt Date: 20150505
  Transmission Date: 20150821
  Serious: Yes (Other)
  Sender: FDA-Public Use
  Company Number: US-JNJFOC-20150319314

PATIENT
  Age: 8 Year
  Sex: Female
  Weight: 20.41 kg

DRUGS (5)
  1. CHILDRENS TYLENOL [Suspect]
     Active Substance: ACETAMINOPHEN
     Indication: ASTHENIA
     Dosage: UNSPECIFIED DOSE, ONCE. 160 MG PER 5 ML.
     Route: 048
     Dates: start: 20150317, end: 20150317
  2. CHILDRENS TYLENOL [Suspect]
     Active Substance: ACETAMINOPHEN
     Indication: HEADACHE
     Dosage: ONE MORE DOSE EITHER LATE NIGHT ON 17-MAR-2015 OR EARLY MORNING ON 18-MAR-2015
     Route: 048
     Dates: start: 201503, end: 201503
  3. CORTISONE [Concomitant]
     Active Substance: CORTISONE\HYDROCORTISONE
     Indication: PRODUCT USED FOR UNKNOWN INDICATION
     Route: 065
  4. CHILDRENS TYLENOL [Suspect]
     Active Substance: ACETAMINOPHEN
     Indication: ASTHENIA
     Dosage: ONE MORE DOSE EITHER LATE NIGHT ON 17-MAR-2015 OR EARLY MORNING ON 18-MAR-2015
     Route: 048
     Dates: start: 201503, end: 201503
  5. CHILDRENS TYLENOL [Suspect]
     Active Substance: ACETAMINOPHEN
     Indication: HEADACHE
     Dosage: UNSPECIFIED DOSE, ONCE. 160 MG PER 5 ML.
     Route: 048
     Dates: start: 20150317, end: 20150317

REACTIONS (6)
  - Product contamination [Unknown]
  - Vomiting [Recovered/Resolved]
  - Product use issue [Unknown]
  - Mental status changes [Recovered/Resolved]
  - Confusional state [Recovered/Resolved]
  - Abnormal behaviour [Recovered/Resolved]

NARRATIVE: CASE EVENT DATE: 20150317
